FAERS Safety Report 11390159 (Version 6)
Quarter: 2015Q4

REPORT INFORMATION
  Report Type: Spontaneous
  Country: US (occurrence: None)
  Receive Date: 20150813
  Receipt Date: 20151030
  Transmission Date: 20160304
  Serious: Yes (Hospitalization, Other)
  Sender: FDA-Public Use
  Company Number: ADR-2015-01522

PATIENT
  Age: 28 Year
  Sex: Female
  Weight: 30 kg

DRUGS (2)
  1. TYLENOL [Suspect]
     Active Substance: ACETAMINOPHEN
     Dosage: 325 MG TABLET
  2. LIORESAL [Suspect]
     Active Substance: BACLOFEN
     Indication: MUSCLE SPASTICITY
     Dosage: 469.5 MCG/DAY

REACTIONS (10)
  - Implant site extravasation [None]
  - Device inversion [None]
  - Medical device site infection [None]
  - Medical device site swelling [None]
  - Hypertonia [None]
  - Cerebrospinal fluid leakage [None]
  - Device breakage [None]
  - Neoplasm [None]
  - Wound secretion [None]
  - Wound dehiscence [None]
